FAERS Safety Report 7175920-8 (Version None)
Quarter: 2010Q4

REPORT INFORMATION
  Report Type: 
  Country: None (occurrence: None)
  Receive Date: 20101220
  Receipt Date: 20101208
  Transmission Date: 20110411
  Serious: Yes (Hospitalization)
  Sender: FDA-Public Use
  Company Number: US-BIOGENIDEC-2010BI038627

PATIENT
  Age: 53 Year
  Sex: Female

DRUGS (6)
  1. TYSABRI [Suspect]
     Indication: MULTIPLE SCLEROSIS
     Route: 042
     Dates: start: 20080424, end: 20100101
  2. EFFEXOR [Concomitant]
  3. PERCOCET [Concomitant]
  4. ZOCOR [Concomitant]
  5. BACLOFEN [Concomitant]
  6. AMBIEN [Concomitant]

REACTIONS (5)
  - DECUBITUS ULCER [None]
  - INCONTINENCE [None]
  - INFECTION [None]
  - PAIN [None]
  - URINARY TRACT INFECTION [None]
